FAERS Safety Report 15907022 (Version 1)
Quarter: 2019Q1

REPORT INFORMATION
  Report Type: Spontaneous
  Country: US (occurrence: US)
  Receive Date: 20190111
  Receipt Date: 20190111
  Transmission Date: 20190417
  Serious: No
  Sender: FDA-Public Use
  Company Number: None

PATIENT
  Age: 62 Year
  Sex: Female

DRUGS (1)
  1. ACTEMRA [Suspect]
     Active Substance: TOCILIZUMAB
     Indication: POLYARTHRITIS
     Dosage: ?          OTHER DOSE:162MG(0.9ML) ;?
     Route: 058
     Dates: start: 201808

REACTIONS (2)
  - Cardiac disorder [None]
  - Nasopharyngitis [None]
